FAERS Safety Report 19447934 (Version 1)
Quarter: 2021Q2

REPORT INFORMATION
  Report Type: Spontaneous
  Country: US (occurrence: US)
  Receive Date: 20210622
  Receipt Date: 20210622
  Transmission Date: 20210717
  Serious: No
  Sender: FDA-Public Use
  Company Number: None

PATIENT
  Age: 69 Year
  Sex: Female

DRUGS (3)
  1. TALTZ [Suspect]
     Active Substance: IXEKIZUMAB
     Indication: RHEUMATOID ARTHRITIS
     Route: 058
     Dates: start: 202006
  2. TALTZ [Suspect]
     Active Substance: IXEKIZUMAB
     Indication: BURSITIS
  3. TALTZ [Suspect]
     Active Substance: IXEKIZUMAB
     Indication: PSORIATIC ARTHROPATHY

REACTIONS (1)
  - Hip arthroplasty [None]
